FAERS Safety Report 5380794-1 (Version None)
Quarter: 2007Q3

REPORT INFORMATION
  Report Type: 
  Country: None (occurrence: None)
  Receive Date: 20070706
  Receipt Date: 20070628
  Transmission Date: 20080115
  Serious: Yes (Hospitalization)
  Sender: FDA-Public Use
  Company Number: B0478026A

PATIENT
  Age: 55 Year
  Sex: Female
  Weight: 67 kg

DRUGS (2)
  1. LAPATINIB [Suspect]
     Dosage: 1250MG PER DAY
     Route: 048
     Dates: start: 20070428, end: 20070607
  2. CAPECITABINE [Suspect]
     Route: 048
     Dates: start: 20070428, end: 20070601

REACTIONS (4)
  - BILE DUCT CANCER [None]
  - CHOLESTASIS [None]
  - HYPERBILIRUBINAEMIA [None]
  - JAUNDICE [None]
